FAERS Safety Report 17120453 (Version 3)
Quarter: 2020Q1

REPORT INFORMATION
  Report Type: Spontaneous
  Country: JP (occurrence: JP)
  Receive Date: 20191206
  Receipt Date: 20200118
  Transmission Date: 20200409
  Serious: Yes (Hospitalization, Other)
  Sender: FDA-Public Use
  Company Number: JP-ACCORD-164560

PATIENT
  Age: 54 Year
  Sex: Female
  Weight: 72.7 kg

DRUGS (2)
  1. OXALIPLATIN. [Suspect]
     Active Substance: OXALIPLATIN
     Indication: GASTRIC CANCER
     Dosage: S1+L-OHP REGIMEN, ON DAY 1, EVERY 3 WEEKS
  2. GIMERACIL/OTERACIL/TEGAFUR [Suspect]
     Active Substance: GIMERACIL\OTERACIL\TEGAFUR
     Indication: GASTRIC CANCER
     Dosage: 80 TO 120 MG/DAY OF S-1 ACCORDING TO BODY SURFACE AREA FOR 2 WEEKS, EVERY 3 WEEKS

REACTIONS (2)
  - Condition aggravated [Recovered/Resolved]
  - Hereditary motor and sensory neuropathy [Recovered/Resolved]
